FAERS Safety Report 4440643-2 (Version None)
Quarter: 2004Q3

REPORT INFORMATION
  Report Type: 
  Country: None (occurrence: None)
  Receive Date: 20040831
  Receipt Date: 20040504
  Transmission Date: 20050211
  Serious: Yes (Hospitalization)
  Sender: FDA-Public Use
  Company Number: USA040465361

PATIENT
  Age: 24 Year
  Sex: Male

DRUGS (1)
  1. SYMBYAX [Suspect]
     Dates: start: 20040330, end: 20040406

REACTIONS (1)
  - OVERDOSE [None]
